FAERS Safety Report 7754002-8 (Version None)
Quarter: 2011Q3

REPORT INFORMATION
  Report Type: 
  Country: None (occurrence: None)
  Receive Date: 20110915
  Receipt Date: 20110906
  Transmission Date: 20111222
  Serious: Yes (Hospitalization)
  Sender: FDA-Public Use
  Company Number: US-ACTELION-A-US2011-44753

PATIENT

DRUGS (1)
  1. TRACLEER [Suspect]
     Indication: PULMONARY ARTERIAL HYPERTENSION
     Dosage: 62.5 MG, UNK
     Route: 048
     Dates: start: 20101001

REACTIONS (11)
  - CHOLECYSTITIS ACUTE [None]
  - CHOLECYSTECTOMY [None]
  - MOOD ALTERED [None]
  - SOMNOLENCE [None]
  - VOMITING [None]
  - NEPHRITIS [None]
  - HEPATITIS [None]
  - ABDOMINAL PAIN UPPER [None]
  - NAUSEA [None]
  - DECREASED APPETITE [None]
  - OPERATIVE HAEMORRHAGE [None]
